FAERS Safety Report 24398837 (Version 1)
Quarter: 2024Q4

REPORT INFORMATION
  Report Type: Spontaneous
  Country: CN (occurrence: CN)
  Receive Date: 20241004
  Receipt Date: 20241004
  Transmission Date: 20250114
  Serious: Yes (Other)
  Sender: ELI LILLY AND CO
  Company Number: CN-MLMSERVICE-20240916-PI193606-00165-1

PATIENT
  Age: 65 Year
  Sex: Male

DRUGS (5)
  1. GEMCITABINE HYDROCHLORIDE [Suspect]
     Active Substance: GEMCITABINE HYDROCHLORIDE
     Indication: Peritoneal carcinoma metastatic
     Dosage: UNK, CYCLICAL
     Route: 065
     Dates: start: 201912, end: 202006
  2. GEMCITABINE HYDROCHLORIDE [Suspect]
     Active Substance: GEMCITABINE HYDROCHLORIDE
     Indication: Ductal adenocarcinoma of pancreas
  3. PACLITAXEL [Suspect]
     Active Substance: PACLITAXEL
     Indication: Ductal adenocarcinoma of pancreas
     Dosage: UNK UNK, UNKNOWN
     Route: 065
     Dates: start: 201912, end: 202006
  4. PACLITAXEL [Suspect]
     Active Substance: PACLITAXEL
     Indication: Peritoneal carcinoma metastatic
  5. ASPIRIN [Concomitant]
     Active Substance: ASPIRIN
     Indication: Coronary artery disease
     Dosage: UNK, UNKNOWN
     Route: 065

REACTIONS (1)
  - Neurotoxicity [Unknown]

NARRATIVE: CASE EVENT DATE: 20200101
